FAERS Safety Report 8091280-2 (Version None)
Quarter: 2012Q1

REPORT INFORMATION
  Report Type: 
  Country: None (occurrence: None)
  Receive Date: 20120129
  Receipt Date: 20111017
  Transmission Date: 20120608
  Serious: No
  Sender: FDA-Public Use
  Company Number: US-ABBOTT-11P-163-0865162-00

PATIENT
  Sex: Male
  Weight: 89.892 kg

DRUGS (8)
  1. HUMIRA [Suspect]
     Indication: PSORIATIC ARTHROPATHY
     Dates: start: 20110915, end: 20110915
  2. METHOTREXATE [Concomitant]
     Indication: PSORIATIC ARTHROPATHY
  3. FOLIC ACID [Concomitant]
     Indication: VITAMIN SUPPLEMENTATION
  4. NAPROSYN [Concomitant]
     Indication: INFLAMMATION
  5. HUMIRA [Suspect]
     Dates: start: 20110921, end: 20110921
  6. HUMIRA [Suspect]
     Dates: start: 20110928
  7. LISINOPRIL [Concomitant]
     Indication: HYPERTENSION
  8. PRISTIQ [Concomitant]
     Indication: DEPRESSION

REACTIONS (3)
  - INCORRECT DOSE ADMINISTERED [None]
  - DRUG EFFECT DECREASED [None]
  - ARTHRALGIA [None]
